FAERS Safety Report 10540844 (Version 1)
Quarter: 2014Q4

REPORT INFORMATION
  Report Type: Spontaneous
  Country: BE (occurrence: None)
  Receive Date: 20141022
  Receipt Date: 20141022
  Transmission Date: 20150529
  Serious: Yes (Hospitalization)
  Sender: FDA-Public Use
  Company Number: INT_00487_2014

PATIENT
  Age: 64 Year
  Sex: Female

DRUGS (5)
  1. ROCURONIUM BROMIDE. [Concomitant]
     Active Substance: ROCURONIUM BROMIDE
  2. DOXORUBICIN (DOXORUBICIN) [Suspect]
     Active Substance: DOXORUBICIN
     Indication: METASTATIC GASTRIC CANCER
     Dosage: [23.4 MG, ADMINISTERED IN THREE DOSES OVER 90 MIN
     Route: 033
  3. PROPOFOL. [Concomitant]
     Active Substance: PROPOFOL
  4. CISPLATIN (CISPLATIN) (HQ SPECIALTY) [Suspect]
     Active Substance: CISPLATIN
     Indication: METASTATIC GASTRIC CANCER
     Dosage: [78 MG, ADMINISTERED IN THREE DOSES OVER 90 MINUTES
     Route: 033
  5. FENTANYL. [Concomitant]
     Active Substance: FENTANYL

REACTIONS (4)
  - Disease complication [None]
  - Muscle abscess [None]
  - Paraesthesia [None]
  - Rhabdomyolysis [None]
